FAERS Safety Report 22059348 (Version 1)
Quarter: 2023Q1

REPORT INFORMATION
  Report Type: Spontaneous
  Country: IT (occurrence: IT)
  Receive Date: 20230303
  Receipt Date: 20230303
  Transmission Date: 20230417
  Serious: Yes (Hospitalization)
  Sender: FDA-Public Use
  Company Number: IT-MYLANLABS-2021M1076411

PATIENT
  Age: 33 Year
  Sex: Female

DRUGS (12)
  1. EVEROLIMUS [Suspect]
     Active Substance: EVEROLIMUS
     Indication: Triple negative breast cancer
     Dosage: 7.5 MILLIGRAM, QD
     Route: 065
     Dates: start: 202002
  2. PACLITAXEL [Suspect]
     Active Substance: PACLITAXEL
     Indication: Metaplastic breast carcinoma
     Dosage: 80 MILLIGRAM/SQ. METER, CYCLE
     Route: 065
     Dates: start: 201903, end: 201906
  3. CAPECITABINE [Suspect]
     Active Substance: CAPECITABINE
     Indication: Metaplastic breast carcinoma
     Dosage: 500 MILLIGRAM/SQ. METER, TID, CYCLE
     Route: 065
     Dates: start: 201911, end: 201912
  4. DOXORUBICIN [Suspect]
     Active Substance: DOXORUBICIN
     Indication: Triple negative breast cancer
     Dosage: 30 MILLIGRAM/SQ. METER
     Route: 065
     Dates: start: 202002
  5. ADRIAMYCIN [Suspect]
     Active Substance: DOXORUBICIN HYDROCHLORIDE
     Indication: Metaplastic breast carcinoma
     Dosage: 60 MILLIGRAM/SQ. METER, CYCLE
     Route: 065
     Dates: start: 201901
  6. BEVACIZUMAB [Suspect]
     Active Substance: BEVACIZUMAB
     Indication: Triple negative breast cancer
     Dosage: 15 MILLIGRAM/KILOGRAM, Q3W (IN FEBRUARY 2020, SHE STARTED THE FIRST CYCL...
     Route: 065
     Dates: start: 202003
  7. CYCLOPHOSPHAMIDE [Suspect]
     Active Substance: CYCLOPHOSPHAMIDE
     Indication: Metaplastic breast carcinoma
     Dosage: 600 MILLIGRAM/SQ. METER, CYCLE
     Route: 042
     Dates: start: 201901
  8. DOCETAXEL [Suspect]
     Active Substance: DOCETAXEL
     Indication: Metaplastic breast carcinoma
     Dosage: UNK, CYCLE
     Route: 065
     Dates: start: 20190123
  9. CISPLATIN [Suspect]
     Active Substance: CISPLATIN
     Indication: Metaplastic breast carcinoma
     Dosage: 60 MILLIGRAM/SQ. METER, CYCLE (2 CYCLES)
     Route: 065
     Dates: start: 201911, end: 201912
  10. VINORELBINE [Suspect]
     Active Substance: VINORELBINE TARTRATE
     Indication: Metaplastic breast carcinoma
     Dosage: 20 MILLIGRAM/SQ. METER (2CYCLE)
     Route: 065
     Dates: start: 201911, end: 201912
  11. ERIBULIN [Suspect]
     Active Substance: ERIBULIN
     Indication: Metaplastic breast carcinoma
     Dosage: 1.23 MILLIGRAM/SQ. METER, (2 CYCLES)
     Route: 065
     Dates: start: 202001
  12. MESALAMINE [Concomitant]
     Active Substance: MESALAMINE
     Indication: Product used for unknown indication
     Dosage: UNK
     Route: 065

REACTIONS (2)
  - Drug ineffective [Unknown]
  - Off label use [Unknown]

NARRATIVE: CASE EVENT DATE: 20200201
